FAERS Safety Report 5324474-7 (Version None)
Quarter: 2007Q2

REPORT INFORMATION
  Report Type: 
  Country: None (occurrence: None)
  Receive Date: 20070514
  Receipt Date: 20070502
  Transmission Date: 20071010
  Serious: Yes (Other)
  Sender: FDA-Public Use
  Company Number: US-PFIZER INC-2006124412

PATIENT
  Sex: Female
  Weight: 99.8 kg

DRUGS (1)
  1. ZITHROMAX [Suspect]
     Indication: PHARYNGOLARYNGEAL PAIN
     Dates: start: 20040401, end: 20040401

REACTIONS (9)
  - BURNING SENSATION [None]
  - DIARRHOEA [None]
  - DRUG INEFFECTIVE [None]
  - NAUSEA [None]
  - PAIN IN EXTREMITY [None]
  - PRURITUS [None]
  - RASH MACULAR [None]
  - SKIN ULCER [None]
  - VOMITING [None]
